FAERS Safety Report 7604824-9 (Version None)
Quarter: 2011Q3

REPORT INFORMATION
  Report Type: 
  Country: None (occurrence: None)
  Receive Date: 20110712
  Receipt Date: 20110702
  Transmission Date: 20111222
  Serious: Yes (Hospitalization)
  Sender: FDA-Public Use
  Company Number: US-CELGENEUS-163-21880-11070196

PATIENT
  Sex: Female

DRUGS (2)
  1. CHEMOTHERAPY [Suspect]
     Route: 065
  2. REVLIMID [Suspect]
     Indication: MULTIPLE MYELOMA
     Dosage: 15 MILLIGRAM
     Route: 048
     Dates: start: 20110604, end: 20110609

REACTIONS (2)
  - SWELLING [None]
  - FEELING ABNORMAL [None]
